FAERS Safety Report 24527139 (Version 1)
Quarter: 2024Q4

REPORT INFORMATION
  Report Type: Report from Study
  Country: US (occurrence: US)
  Receive Date: 20241021
  Receipt Date: 20241021
  Transmission Date: 20250115
  Serious: No
  Sender: ROCHE
  Company Number: US-ROCHE-3283430

PATIENT
  Age: 77 Year
  Sex: Male

DRUGS (10)
  1. COTELLIC [Suspect]
     Active Substance: COBIMETINIB
     Indication: Malignant melanoma
     Dosage: TAKE 3 TABS (60MG) QD ON DAYS 1-21 OF 28 DAYS CYCLE? FREQUENCY TEXT:DAYS 1-21 OF 28 DAYS CYCLE
     Route: 048
  2. ZELBORAF [Suspect]
     Active Substance: VEMURAFENIB
     Indication: Malignant melanoma
     Dosage: TAKE 4 TABS ORALLY TWICE DAILY ON DAYS 1-28 (28 DAYS CYCLE)
     Route: 048
  3. ACYCLOVIR [Concomitant]
     Active Substance: ACYCLOVIR
  4. ALLERGY RELIEF [DIPHENHYDRAMINE HYDROCHLORIDE] [Concomitant]
  5. CALCIUM [Concomitant]
     Active Substance: CALCIUM
  6. GLIPIZIDE [Concomitant]
     Active Substance: GLIPIZIDE
  7. LOMOTIL [Concomitant]
     Active Substance: ATROPINE SULFATE\DIPHENOXYLATE HYDROCHLORIDE
  8. PREDNISONE [Concomitant]
     Active Substance: PREDNISONE
  9. ONDANSETRON [Concomitant]
     Active Substance: ONDANSETRON
  10. PROCHLORPERAZINE [Concomitant]
     Active Substance: PROCHLORPERAZINE

REACTIONS (4)
  - Fatigue [Unknown]
  - Ill-defined disorder [Unknown]
  - Nausea [Unknown]
  - Fatigue [Unknown]
